FAERS Safety Report 8689898 (Version 2)
Quarter: 2013Q2

REPORT INFORMATION
  Report Type: Spontaneous
  Country: US (occurrence: US)
  Receive Date: 20120727
  Receipt Date: 20130513
  Transmission Date: 20140414
  Serious: No
  Sender: FDA-Public Use
  Company Number: US-ASTRAZENECA-2012SE15184

PATIENT
  Age: 59 Year
  Sex: Female
  Weight: 95.3 kg

DRUGS (6)
  1. SEROQUEL [Suspect]
     Indication: DEPRESSION
     Route: 048
  2. SEROQUEL [Suspect]
     Indication: DEPRESSION
     Route: 048
  3. CRESTOR [Suspect]
     Route: 048
  4. PAROXITINE [Concomitant]
  5. CARBAMAZEPINE [Concomitant]
  6. CONCERTA [Concomitant]

REACTIONS (7)
  - Sleep disorder [Unknown]
  - Middle insomnia [Unknown]
  - Feeling abnormal [Unknown]
  - Fatigue [Unknown]
  - Fatigue [Unknown]
  - Weight increased [Unknown]
  - Hepatic enzyme increased [Unknown]
